FAERS Safety Report 11370611 (Version 2)
Quarter: 2015Q3

REPORT INFORMATION
  Report Type: Spontaneous
  Country: US (occurrence: US)
  Receive Date: 20150812
  Receipt Date: 20150824
  Transmission Date: 20151125
  Serious: Yes (Death)
  Sender: FDA-Public Use
  Company Number: US-BIOGENIDEC-2015BI111343

PATIENT
  Age: 47 Year
  Sex: Male

DRUGS (1)
  1. PLEGRIDY [Suspect]
     Active Substance: PEGINTERFERON BETA-1A
     Indication: MULTIPLE SCLEROSIS
     Route: 058
     Dates: start: 20150312

REACTIONS (4)
  - Alcohol abuse [Unknown]
  - Fluid intake reduced [Unknown]
  - Malnutrition [Unknown]
  - Fall [Fatal]

NARRATIVE: CASE EVENT DATE: 20150801
